FAERS Safety Report 19248383 (Version 1)
Quarter: 2021Q2

REPORT INFORMATION
  Report Type: Spontaneous
  Country: CN (occurrence: CN)
  Receive Date: 20210512
  Receipt Date: 20210512
  Transmission Date: 20210717
  Serious: Yes (Other)
  Sender: FDA-Public Use
  Company Number: CN-SA-2021SA150444

PATIENT
  Age: 36 Year
  Sex: Male

DRUGS (2)
  1. LANTUS SOLOSTAR [Suspect]
     Active Substance: INSULIN GLARGINE
     Dosage: 26 IU, QD
     Route: 065
     Dates: start: 2019
  2. GANSULIN [Concomitant]
     Dosage: 12?6?10 IU/AFTER THREE MEALS/IH
     Route: 065

REACTIONS (2)
  - Visual impairment [Unknown]
  - Retinal haemorrhage [Not Recovered/Not Resolved]
